FAERS Safety Report 18464796 (Version 1)
Quarter: 2020Q4

REPORT INFORMATION
  Report Type: Spontaneous
  Country: US (occurrence: US)
  Receive Date: 20201105
  Receipt Date: 20201105
  Transmission Date: 20210114
  Serious: Yes (Hospitalization, Other)
  Sender: FDA-Public Use
  Company Number: US-HORMOSAN PHARMA GMBH-2020-08043

PATIENT
  Age: 77 Year
  Sex: Male

DRUGS (1)
  1. TADALAFIL. [Suspect]
     Active Substance: TADALAFIL
     Indication: URINARY RETENTION
     Dosage: UNK UNK, QD
     Route: 065

REACTIONS (3)
  - Cerebral haemorrhage [Unknown]
  - Aphasia [Unknown]
  - Visual impairment [Unknown]
